FAERS Safety Report 12469191 (Version 1)
Quarter: 2016Q2

REPORT INFORMATION
  Report Type: Spontaneous
  Country: FR (occurrence: FR)
  Receive Date: 20160615
  Receipt Date: 20160615
  Transmission Date: 20160815
  Serious: Yes (Other)
  Sender: FDA-Public Use
  Company Number: FR-JNJFOC-20160405063

PATIENT
  Age: 45 Year
  Sex: Female
  Weight: 55 kg

DRUGS (9)
  1. EPITOMAX [Suspect]
     Active Substance: TOPIRAMATE
     Indication: MIGRAINE
     Route: 048
  2. OPTILOVA [Concomitant]
     Active Substance: ETHINYL ESTRADIOL\LEVONORGESTREL
     Route: 065
  3. BIPROFENID [Concomitant]
     Active Substance: KETOPROFEN
     Indication: MIGRAINE
     Dosage: 1 TABLET AT BEGINING OF CEPHALALGIA
     Route: 048
  4. EPITOMAX [Suspect]
     Active Substance: TOPIRAMATE
     Indication: MIGRAINE
     Route: 048
     Dates: start: 20151223
  5. KETOPROFEN. [Concomitant]
     Active Substance: KETOPROFEN
     Route: 065
  6. EPITOMAX [Suspect]
     Active Substance: TOPIRAMATE
     Indication: MIGRAINE
     Route: 048
  7. TRAMADOL. [Concomitant]
     Active Substance: TRAMADOL
     Route: 065
  8. ZOMIG [Concomitant]
     Active Substance: ZOLMITRIPTAN
     Route: 065
  9. LAMALINE [Concomitant]
     Active Substance: ACETAMINOPHEN\CAFFEINE\OPIUM
     Route: 065

REACTIONS (4)
  - Gingival bleeding [Not Recovered/Not Resolved]
  - Photosensitivity reaction [Recovered/Resolved]
  - Sunburn [Unknown]
  - Face oedema [Recovered/Resolved]

NARRATIVE: CASE EVENT DATE: 20160101
